FAERS Safety Report 16663535 (Version 1)
Quarter: 2019Q3

REPORT INFORMATION
  Report Type: Report from Study
  Country: US (occurrence: US)
  Receive Date: 20190802
  Receipt Date: 20190802
  Transmission Date: 20191004
  Serious: No
  Sender: FDA-Public Use
  Company Number: US-EXELIXIS-CABO-19021395

PATIENT
  Sex: Male

DRUGS (1)
  1. CABOMETYX [Suspect]
     Active Substance: CABOZANTINIB S-MALATE
     Indication: RENAL CANCER
     Dosage: 60 MG, QD
     Route: 048
     Dates: start: 20190503

REACTIONS (10)
  - Paraesthesia [Unknown]
  - Burning sensation [Unknown]
  - Rash generalised [Unknown]
  - Stomatitis [Unknown]
  - Dry mouth [Unknown]
  - Pharyngeal haemorrhage [Unknown]
  - Pruritus generalised [Unknown]
  - Productive cough [Unknown]
  - Blood pressure increased [Unknown]
  - Dysphonia [Unknown]

NARRATIVE: CASE EVENT DATE: 2019
